FAERS Safety Report 16531401 (Version 4)
Quarter: 2019Q4

REPORT INFORMATION
  Report Type: Spontaneous
  Country: IL (occurrence: IL)
  Receive Date: 20190705
  Receipt Date: 20191126
  Transmission Date: 20200122
  Serious: Yes (Death, Life-Threatening, Hospitalization, Other)
  Sender: FDA-Public Use
  Company Number: IL-009507513-1907ISR001647

PATIENT
  Age: 88 Year
  Sex: Male
  Weight: 73 kg

DRUGS (2)
  1. KEYTRUDA [Suspect]
     Active Substance: PEMBROLIZUMAB
     Indication: TRANSITIONAL CELL CARCINOMA
     Dosage: 200 MILLIGRAM, Q3W
     Route: 042
     Dates: start: 20190623, end: 20190623
  2. KEYTRUDA [Suspect]
     Active Substance: PEMBROLIZUMAB
     Indication: MALIGNANT URINARY TRACT NEOPLASM
     Dosage: 200 MILLIGRAM, Q3W
     Dates: start: 20190602

REACTIONS (14)
  - Myasthenia gravis [Unknown]
  - Death [Fatal]
  - Dysphagia [Unknown]
  - Dizziness [Unknown]
  - Atrioventricular block [Fatal]
  - Pneumonia aspiration [Unknown]
  - Transaminases increased [Recovering/Resolving]
  - Troponin increased [Recovering/Resolving]
  - Peripheral sensory neuropathy [Fatal]
  - Myocarditis [Fatal]
  - Muscular weakness [Unknown]
  - Hepatitis [Fatal]
  - Myositis [Fatal]
  - Septic shock [Unknown]

NARRATIVE: CASE EVENT DATE: 2019
